FAERS Safety Report 11090783 (Version 1)
Quarter: 2015Q2

REPORT INFORMATION
  Report Type: Spontaneous
  Country: US (occurrence: None)
  Receive Date: 20150504
  Receipt Date: 20150504
  Transmission Date: 20150821
  Serious: No
  Sender: FDA-Public Use
  Company Number: None

PATIENT
  Age: 42 Year
  Sex: Female
  Weight: 116.12 kg

DRUGS (12)
  1. MOVE FREE ULTRA [Concomitant]
  2. LOSARTAN POTTASIUM [Concomitant]
  3. ZYRTEC [Concomitant]
     Active Substance: CETIRIZINE HYDROCHLORIDE
  4. NASONEX [Concomitant]
     Active Substance: MOMETASONE FUROATE
  5. XOPENEX INHALER [Concomitant]
  6. NEBULIZER [Concomitant]
     Active Substance: UNSPECIFIED INGREDIENT
  7. DICLOFINAC [Concomitant]
  8. VITAMIN [Concomitant]
     Active Substance: VITAMINS
  9. LEXAPRO [Concomitant]
     Active Substance: ESCITALOPRAM OXALATE
  10. NITROFURANTOIN MONO/MAC [Suspect]
     Active Substance: NITROFURANTOIN\NITROFURANTOIN MONOHYDRATE
     Indication: URINARY TRACT INFECTION
     Route: 048
     Dates: start: 20150418, end: 20150429
  11. OMNAPRAZOLE [Concomitant]
  12. ONE A DAY FOR WOMEN [Concomitant]

REACTIONS (1)
  - Menstruation delayed [None]

NARRATIVE: CASE EVENT DATE: 20150418
